FAERS Safety Report 4740425-8 (Version None)
Quarter: 2005Q3

REPORT INFORMATION
  Report Type: 
  Country: None (occurrence: None)
  Receive Date: 20050729
  Receipt Date: 20050614
  Transmission Date: 20060218
  Serious: Yes (Other)
  Sender: FDA-Public Use
  Company Number: COT_0094_2005

PATIENT
  Age: 32 Year
  Sex: Female
  Weight: 62.5964 kg

DRUGS (8)
  1. VENTAVIS [Suspect]
     Indication: PULMONARY HYPERTENSION
     Dosage: 5 MCG UNK IH
     Route: 055
     Dates: start: 20050607, end: 20050623
  2. TRACLEER [Concomitant]
  3. PLAQUENIL [Concomitant]
  4. PREDNISONE [Concomitant]
  5. COUMADIN [Concomitant]
  6. LASIX [Concomitant]
  7. POTASSIUM CHLORIDE [Concomitant]
  8. PROCARDIA XL [Concomitant]

REACTIONS (2)
  - CHEST PAIN [None]
  - HEADACHE [None]
